FAERS Safety Report 12707224 (Version 1)
Quarter: 2016Q3

REPORT INFORMATION
  Report Type: Spontaneous
  Country: JP (occurrence: JP)
  Receive Date: 20160901
  Receipt Date: 20160901
  Transmission Date: 20161109
  Serious: Yes (Other)
  Sender: FDA-Public Use
  Company Number: JP-ABBVIE-16P-087-1716455-00

PATIENT
  Age: 72 Year
  Sex: Male

DRUGS (2)
  1. LEUPLIN [Suspect]
     Active Substance: LEUPROLIDE ACETATE
     Indication: PROSTATE CANCER
     Dosage: 3.75 MG, Q4WEEKS
     Route: 058
     Dates: start: 201407
  2. CASODEX [Concomitant]
     Active Substance: BICALUTAMIDE
     Indication: PROSTATE CANCER
     Dosage: 80 MG, UNK
     Route: 048
     Dates: start: 201407

REACTIONS (4)
  - Meningioma [Recovered/Resolved]
  - Hydrocephalus [Recovering/Resolving]
  - Gait disturbance [Recovering/Resolving]
  - Cognitive disorder [Recovering/Resolving]
